FAERS Safety Report 8908511 (Version 1)
Quarter: 2012Q4

REPORT INFORMATION
  Report Type: Report from Study
  Country: BR (occurrence: BR)
  Receive Date: 20121114
  Receipt Date: 20121114
  Transmission Date: 20130627
  Serious: Yes (Hospitalization)
  Sender: FDA-Public Use
  Company Number: BR-ROCHE-763662

PATIENT
  Age: 59 Year
  Sex: Female
  Weight: 72.8 kg

DRUGS (10)
  1. RITUXIMAB [Suspect]
     Indication: GRANULOMATOSIS WITH POLYANGIITIS
     Route: 042
     Dates: start: 20100701, end: 20120403
  2. METICORTEN [Concomitant]
     Route: 065
  3. METICORTEN [Concomitant]
     Dosage: DOSE DECREASED DUE TO HYPERTENSION
     Route: 065
  4. METICORTEN [Concomitant]
     Dosage: DOSE INCREASED DUE TO PURPLE SPOTS
     Route: 065
  5. METFORMIN [Concomitant]
     Route: 065
  6. CAPTOPRIL [Concomitant]
     Route: 065
  7. GARDENAL [Concomitant]
     Indication: CONVULSION
     Route: 065
  8. ENDOFOLIN [Concomitant]
     Route: 065
  9. METHOTREXATE [Concomitant]
     Dosage: TAKEN ON WEDNESDAYS
     Route: 065
  10. ZOFRAN [Concomitant]
     Indication: PREMEDICATION

REACTIONS (4)
  - Blood potassium abnormal [Recovered/Resolved]
  - Blood sodium abnormal [Recovered/Resolved]
  - Weight decreased [Unknown]
  - Urinary tract infection [Recovered/Resolved]
